FAERS Safety Report 24155060 (Version 3)
Quarter: 2025Q1

REPORT INFORMATION
  Report Type: Report from Study
  Country: US (occurrence: US)
  Receive Date: 20240731
  Receipt Date: 20250301
  Transmission Date: 20250408
  Serious: Yes (Hospitalization)
  Sender: AMNEAL
  Company Number: US-AMNEAL PHARMACEUTICALS-2024-AMRX-02769

PATIENT
  Sex: Female
  Weight: 61.678 kg

DRUGS (1)
  1. OPICAPONE [Suspect]
     Active Substance: OPICAPONE
     Indication: Parkinson^s disease
     Dosage: 1 CAPSULES, BEDTIME (QHS)
     Route: 048

REACTIONS (7)
  - Hospitalisation [Recovered/Resolved]
  - Bradykinesia [Unknown]
  - Illness [Unknown]
  - Withdrawal syndrome [Unknown]
  - Confusional state [Unknown]
  - Underdose [Unknown]
  - Product use issue [Unknown]
